FAERS Safety Report 22254010 (Version 2)
Quarter: 2023Q2

REPORT INFORMATION
  Report Type: Spontaneous
  Country: US (occurrence: US)
  Receive Date: 20230426
  Receipt Date: 20230529
  Transmission Date: 20230721
  Serious: No
  Sender: FDA-Public Use
  Company Number: US-GSK-US2023AMR057523

PATIENT
  Sex: Male

DRUGS (1)
  1. ALBUTEROL SULFATE [Suspect]
     Active Substance: ALBUTEROL SULFATE
     Indication: Product used for unknown indication
     Dosage: UNK 90MCG 1X200D
     Dates: start: 2003

REACTIONS (3)
  - Dyspnoea [Unknown]
  - Lung disorder [Unknown]
  - Product complaint [Unknown]
